FAERS Safety Report 17434758 (Version 7)
Quarter: 2021Q2

REPORT INFORMATION
  Report Type: Report from Study
  Country: CA (occurrence: CA)
  Receive Date: 20200219
  Receipt Date: 20210529
  Transmission Date: 20210716
  Serious: Yes (Hospitalization, Other)
  Sender: FDA-Public Use
  Company Number: PHHY2019CA223893

PATIENT
  Age: 55 Year
  Sex: Female

DRUGS (4)
  1. ERELZI [Suspect]
     Active Substance: ETANERCEPT-SZZS
     Dosage: 50 MG, QW
     Route: 058
     Dates: start: 201910
  2. AMITRIPTYLINE [Concomitant]
     Active Substance: AMITRIPTYLINE
     Indication: PRODUCT USED FOR UNKNOWN INDICATION
     Dosage: UNK, QW
     Route: 065
  3. ERELZI [Suspect]
     Active Substance: ETANERCEPT-SZZS
     Indication: RHEUMATOID ARTHRITIS
     Dosage: 50 MG, QW
     Route: 058
     Dates: start: 20190913
  4. SYNTHROID [Concomitant]
     Active Substance: LEVOTHYROXINE SODIUM
     Indication: PRODUCT USED FOR UNKNOWN INDICATION
     Dosage: UNK UNK, QW
     Route: 065
     Dates: start: 1994

REACTIONS (25)
  - Pneumonia [Unknown]
  - Head discomfort [Unknown]
  - Product dose omission issue [Unknown]
  - Gastric disorder [Unknown]
  - Sinus disorder [Unknown]
  - Headache [Unknown]
  - Pain in extremity [Unknown]
  - Drug ineffective [Unknown]
  - Secretion discharge [Unknown]
  - Liver function test increased [Unknown]
  - Pollakiuria [Unknown]
  - Insomnia [Unknown]
  - Infection [Unknown]
  - Cystitis [Unknown]
  - Vision blurred [Unknown]
  - Back pain [Unknown]
  - Abdominal discomfort [Unknown]
  - Hiatus hernia [Unknown]
  - Pain [Unknown]
  - Arthralgia [Unknown]
  - Pain in jaw [Unknown]
  - Injection site pain [Not Recovered/Not Resolved]
  - Abdominal pain upper [Unknown]
  - Nasopharyngitis [Unknown]
  - Urinary tract infection [Unknown]

NARRATIVE: CASE EVENT DATE: 201903
